FAERS Safety Report 5335064-4 (Version None)
Quarter: 2007Q2

REPORT INFORMATION
  Report Type: 
  Country: None (occurrence: None)
  Receive Date: 20070525
  Receipt Date: 20070518
  Transmission Date: 20071010
  Serious: Yes (Hospitalization, Other)
  Sender: FDA-Public Use
  Company Number: 10652667

PATIENT
  Age: 24 Hour
  Sex: Female
  Weight: 3 kg

DRUGS (16)
  1. VIDEX [Suspect]
     Dosage: RECEIVED FROM CONCEPTION TO DAY 3 OF GESTATION, THEN FROM WEEK 27 OF GESTATION TO DELIVERY
     Route: 064
  2. ZERIT [Suspect]
     Route: 064
  3. SUSTIVA [Suspect]
     Route: 064
  4. INVIRASE [Suspect]
     Indication: HIV INFECTION
     Dosage: INITIATED AT 27 WEEKS OF GESTATION
     Route: 064
  5. NORVIR [Suspect]
     Dosage: RECEIVED FROM  WEEK 27 OF GESTATION TO DELIVERY
     Route: 064
  6. FORTOVASE [Suspect]
     Dosage: RECEIVED FROM  WEEK 27 OF GESTATION TO DELIVERY
     Route: 064
  7. VIRAMUNE [Suspect]
     Indication: HIV INFECTION
     Dosage: RECEIVED ONE SINGLE ORAL DOSE,  FROM 27 WEEKS GESTATION TRANSPLACENTAL EXPOSURE
     Route: 048
  8. VIRAMUNE [Suspect]
     Dosage: RECEIVED INFUSION DURING DELIVERY,
     Route: 064
  9. RETROVIR [Suspect]
     Dosage: RECEIVED 6 WEEKS OF ANTIRETROVIRAL THERAPY AFTER DELIVERY, 200MG/20ML
     Route: 042
  10. RETROVIR [Suspect]
     Dosage: RECEIVED FROM CONCEPTION TO DAY 3 OF GESTATION AND FROM WEEK 27 OF GESTATION TO AND AT DELIVERY.
     Route: 064
  11. CORDARONE [Concomitant]
  12. SPECIAFOLDINE [Concomitant]
  13. FERROSTRANE [Concomitant]
     Dosage: ^2 COFFE SPOONS DAILY^
     Route: 048
  14. UVESTEROL D [Concomitant]
  15. FLUOREX [Concomitant]
  16. AZT [Concomitant]

REACTIONS (17)
  - ABDOMINAL DISTENSION [None]
  - ABDOMINAL PAIN [None]
  - ANAEMIA [None]
  - BLOOD CREATINE PHOSPHOKINASE INCREASED [None]
  - FLATULENCE [None]
  - HEPATOMEGALY [None]
  - HYPERCHOLESTEROLAEMIA [None]
  - HYPERLACTACIDAEMIA [None]
  - HYPERTRIGLYCERIDAEMIA [None]
  - HYPOTONIA [None]
  - MALAISE [None]
  - MUCOUS STOOLS [None]
  - NEUTROPENIA [None]
  - OBESITY [None]
  - OXYGEN SATURATION DECREASED [None]
  - PLATELET COUNT INCREASED [None]
  - VENTRICULAR TACHYCARDIA [None]
